FAERS Safety Report 24642938 (Version 1)
Quarter: 2024Q4

REPORT INFORMATION
  Report Type: Spontaneous
  Country: US (occurrence: US)
  Receive Date: 20241120
  Receipt Date: 20241120
  Transmission Date: 20250114
  Serious: No
  Sender: Haleon PLC
  Company Number: US-HALEON-2209903

PATIENT
  Sex: Female

DRUGS (1)
  1. SENSODYNE PRONAMEL INTENSIVE ENAMEL REPAIR WHITENING [Suspect]
     Active Substance: POTASSIUM NITRATE\SODIUM FLUORIDE
     Dosage: EXPDATE:20260331
     Dates: start: 20241114, end: 20241119

REACTIONS (2)
  - Hyperaesthesia teeth [Not Recovered/Not Resolved]
  - Condition aggravated [Not Recovered/Not Resolved]

NARRATIVE: CASE EVENT DATE: 20241115
